FAERS Safety Report 8530367-4 (Version None)
Quarter: 2012Q3

REPORT INFORMATION
  Report Type: 
  Country: None (occurrence: None)
  Receive Date: 20120723
  Receipt Date: 20120719
  Transmission Date: 20120928
  Serious: Yes (Other)
  Sender: FDA-Public Use
  Company Number: US-PFIZER INC-2012175710

PATIENT
  Sex: Female
  Weight: 88.889 kg

DRUGS (5)
  1. VENLAFAXINE HCL [Suspect]
     Indication: DEPRESSION
     Dosage: 75 MG, 1X/DAY
     Route: 048
  2. VENLAFAXINE HCL [Suspect]
     Indication: ANXIETY
  3. LORAZEPAM [Concomitant]
     Indication: ANXIETY
     Dosage: UNK
  4. EFFEXOR XR [Suspect]
     Indication: ANXIETY
  5. EFFEXOR XR [Suspect]
     Indication: DEPRESSION
     Dosage: 75 MG, 1X/DAY
     Route: 048

REACTIONS (2)
  - DEPRESSION [None]
  - MALAISE [None]
